FAERS Safety Report 5729863-4 (Version None)
Quarter: 2008Q2

REPORT INFORMATION
  Report Type: 
  Country: None (occurrence: None)
  Receive Date: 20080502
  Receipt Date: 20080416
  Transmission Date: 20081010
  Serious: Yes (Death)
  Sender: FDA-Public Use
  Company Number: 2008S1006325

PATIENT
  Age: 45 Year
  Sex: Male

DRUGS (13)
  1. AZATHIOPRINE [Suspect]
     Indication: IMMUNOSUPPRESSION
     Dosage: 100 MG; NULL_1_DAY;
  2. METHYLPREDNISOLONE [Suspect]
     Indication: IMMUNOSUPPRESSION
     Dosage: 5 MG; TWICE A DAY;
  3. TACROLIMUS [Suspect]
     Indication: IMMUNOSUPPRESSION
  4. COTRIM [Concomitant]
  5. CLOTRIMAZOLE [Concomitant]
  6. FUROSEMIDE [Concomitant]
  7. PROPRANOLOL [Concomitant]
  8. HYDROXYZINE [Concomitant]
  9. LACTULOSE [Concomitant]
  10. URSODIOL [Concomitant]
  11. CYCLOSPORINE [Concomitant]
  12. MYCOPHENOLATE MOFETIL [Concomitant]
  13. PREDNISONE TAB [Concomitant]

REACTIONS (29)
  - ASCITES [None]
  - BACTERAEMIA [None]
  - BODY TEMPERATURE INCREASED [None]
  - CHILLS [None]
  - CLOSTRIDIUM DIFFICILE TOXIN TEST POSITIVE [None]
  - CONFUSIONAL STATE [None]
  - CRYPTOCOCCOSIS [None]
  - DIARRHOEA [None]
  - DYSARTHRIA [None]
  - FAECAL INCONTINENCE [None]
  - FATIGUE [None]
  - GAIT DISTURBANCE [None]
  - HAEMODIALYSIS [None]
  - HEADACHE [None]
  - HYDROCEPHALUS [None]
  - HYPERREFLEXIA [None]
  - JAW DISORDER [None]
  - MENINGITIS CRYPTOCOCCAL [None]
  - MENTAL STATUS CHANGES [None]
  - MUSCULOSKELETAL STIFFNESS [None]
  - NEUROLOGICAL SYMPTOM [None]
  - OLIGURIA [None]
  - PHOTOPHOBIA [None]
  - REFLEXES ABNORMAL [None]
  - RENAL FAILURE [None]
  - SEPSIS [None]
  - SOMNOLENCE [None]
  - SPEECH DISORDER [None]
  - URINARY INCONTINENCE [None]
